FAERS Safety Report 10412232 (Version 1)
Quarter: 2014Q2

REPORT INFORMATION
  Report Type: Spontaneous
  Country: US (occurrence: None)
  Receive Date: 20140604
  Receipt Date: 20140604
  Transmission Date: 20141212
  Serious: Yes (Other)
  Sender: FDA-Public Use
  Company Number: 163-POMAL-14030599

PATIENT
  Age: 71 Year
  Sex: Male
  Weight: 99.8 kg

DRUGS (17)
  1. POMALYST [Suspect]
     Indication: PLASMA CELL MYELOMA
     Dosage: 4 MG, 21 IN 28 D, PO
     Route: 048
     Dates: start: 20130617, end: 20130622
  2. MVI (MVI) [Concomitant]
  3. ASA *ACETYLSALICYLIC ACID) [Concomitant]
  4. ZOCOR (SIMVASTATIN) [Concomitant]
  5. SYNTHROID (LEVOTHYROXINE SODIUM) [Concomitant]
  6. ABILIFY (ARIPIPRAZOLE) [Concomitant]
  7. CELEBREX (CELECOXIB) [Concomitant]
  8. TRILEPTAL (OXCARBAZEPINE) [Concomitant]
  9. SEROQUEL (QUETIAPINE FUMARATE) [Concomitant]
  10. DEXAMETHASONE (DEXAMETHASONE) [Concomitant]
  11. UROXATRAL (ALFUZOSIN HYDROCHLORIDE) [Concomitant]
  12. CALCIUM WITH VITAMIN D (LEKOVIT CA) [Concomitant]
  13. FLUDROCORTISON ACETATE (FLUDROCORTISONE ACETATE) [Concomitant]
  14. IRON (IRON) [Concomitant]
  15. OXYCODONE HCL (OXYCODONE HYDROCHLORIDE) [Concomitant]
  16. PENICILLIN V POTASSIUM (PHENOXYMETHYLPENICILLIN POTASSIUM) [Concomitant]
  17. VALACYCLOVIR HCL (VALACICLOVIR HYDROCHLORIDE) [Concomitant]

REACTIONS (2)
  - Plasma cell myeloma [None]
  - Plasma cell myeloma [None]
